FAERS Safety Report 9125269 (Version 1)
Quarter: 2013Q1

REPORT INFORMATION
  Report Type: Spontaneous
  Country: ES (occurrence: ES)
  Receive Date: 20130227
  Receipt Date: 20130227
  Transmission Date: 20140127
  Serious: Yes (Hospitalization)
  Sender: FDA-Public Use
  Company Number: ES-ELI_LILLY_AND_COMPANY-ES201302003872

PATIENT
  Sex: Female

DRUGS (1)
  1. FORSTEO [Suspect]
     Dosage: UNK, UNKNOWN
     Route: 065

REACTIONS (6)
  - Hepatitis [Unknown]
  - Inflammation [Unknown]
  - Decreased appetite [Unknown]
  - Gastric disorder [Unknown]
  - Feeling abnormal [Unknown]
  - Vomiting [Unknown]
